FAERS Safety Report 7152611-0 (Version None)
Quarter: 2010Q4

REPORT INFORMATION
  Report Type: 
  Country: None (occurrence: None)
  Receive Date: 20101213
  Receipt Date: 20101206
  Transmission Date: 20110411
  Serious: Yes (Other)
  Sender: FDA-Public Use
  Company Number: DE-JNJFOC-20101202358

PATIENT
  Sex: Male
  Weight: 82 kg

DRUGS (5)
  1. RISPERDAL [Suspect]
     Indication: ILL-DEFINED DISORDER
     Route: 048
  2. ERGENYL [Suspect]
     Indication: ILL-DEFINED DISORDER
     Route: 048
  3. CIPRAMIL [Suspect]
     Indication: ILL-DEFINED DISORDER
     Route: 048
  4. XIMOVAN [Suspect]
     Indication: ILL-DEFINED DISORDER
     Route: 048
  5. PANTOZOL [Suspect]
     Indication: ILL-DEFINED DISORDER
     Route: 048

REACTIONS (2)
  - DRUG ABUSE [None]
  - SOMNOLENCE [None]
